FAERS Safety Report 6108940-2 (Version None)
Quarter: 2009Q1

REPORT INFORMATION
  Report Type: 
  Country: None (occurrence: None)
  Receive Date: 20090310
  Receipt Date: 20090226
  Transmission Date: 20090719
  Serious: Yes (Other)
  Sender: FDA-Public Use
  Company Number: PL-PURDUE-DEU_2009_0005045

PATIENT
  Age: 62 Year
  Sex: Male
  Weight: 73 kg

DRUGS (22)
  1. OXY/NALOXONE CR TABS VS OXYCODONE CR TAB [Suspect]
     Indication: CANCER PAIN
     Dosage: 25 MG, SINGLE
     Route: 048
     Dates: start: 20090223
  2. OXY/NALOXONE CR TABS VS OXYCODONE CR TAB [Suspect]
     Dosage: 50 MG, DAILY
     Route: 048
     Dates: start: 20090129, end: 20090222
  3. OXY/NALOXONE CR TABS VS OXYCODONE CR TAB [Suspect]
     Dosage: 40 MG, DAILY
     Route: 048
     Dates: start: 20090123, end: 20090128
  4. OXY/NALOXONE CR TABS VS OXYCODONE CR TAB [Suspect]
     Dosage: 20 MG, SINGLE
     Route: 048
     Dates: start: 20090122, end: 20090122
  5. ORTHOMOL [Concomitant]
  6. PULMICORT-100 [Concomitant]
  7. OXIS                               /00958001/ [Concomitant]
  8. REFESTIN [Concomitant]
  9. ZOLPIC [Concomitant]
  10. ACC                                /00082801/ [Concomitant]
  11. NYSTATINE [Concomitant]
  12. FLUOMYCIN [Concomitant]
  13. APAP TAB [Concomitant]
  14. GABAPENTIN [Concomitant]
  15. DOXEPIN                            /00138002/ [Concomitant]
  16. BUSCOLYSIN                         /00008702/ [Concomitant]
  17. DIPOXIN [Concomitant]
  18. CLEXANE [Concomitant]
  19. FROMILID [Concomitant]
  20. DEXAVEN [Concomitant]
  21. PYRALGIN                           /00039501/ [Concomitant]
  22. FUROSEMIDE [Concomitant]

REACTIONS (1)
  - FEMUR FRACTURE [None]
